FAERS Safety Report 5470196-1 (Version None)
Quarter: 2007Q3

REPORT INFORMATION
  Report Type: 
  Country: None (occurrence: None)
  Receive Date: 20070924
  Receipt Date: 20070906
  Transmission Date: 20080115
  Serious: Yes (Hospitalization)
  Sender: FDA-Public Use
  Company Number: 018437

PATIENT
  Age: 15 Year
  Sex: Female

DRUGS (3)
  1. CIPROFLOXACIN [Suspect]
     Dosage: 7.5 0 G (15-20) TABLETS, ORAL
     Route: 048
  2. TRAZODONE HCL [Concomitant]
  3. ZOLOFT [Concomitant]

REACTIONS (6)
  - APOPTOSIS [None]
  - MULTIPLE DRUG OVERDOSE [None]
  - NAUSEA [None]
  - RENAL FAILURE ACUTE [None]
  - RENAL TUBULAR NECROSIS [None]
  - VOMITING [None]
